FAERS Safety Report 4560076-8 (Version None)
Quarter: 2005Q1

REPORT INFORMATION
  Report Type: 
  Country: None (occurrence: None)
  Receive Date: 20050124
  Receipt Date: 20050112
  Transmission Date: 20050727
  Serious: Yes (Hospitalization)
  Sender: FDA-Public Use
  Company Number: 2005011540

PATIENT
  Age: 81 Year
  Sex: Male
  Weight: 70.3075 kg

DRUGS (7)
  1. LISTERINE (METHOL, METHYL SALICYLATE, EUCALYPTOL, THYMOL) [Suspect]
     Indication: DENTAL DISORDER PROPHYLAXIS
     Dosage: TWICE DAILY, ORAL TOPICAL
     Route: 048
  2. RAMIPRIL [Concomitant]
  3. CENTRUM (MINERALS NOS, VITAMINS NOS) [Concomitant]
  4. SIMVASTATIN [Concomitant]
  5. CARVEDILOL [Concomitant]
  6. TOCOPHEROL (TOCOPHEROL) [Concomitant]
  7. ASCORBIC ACID [Concomitant]

REACTIONS (1)
  - MYOCARDIAL INFARCTION [None]
